FAERS Safety Report 12849134 (Version 2)
Quarter: 2016Q4

REPORT INFORMATION
  Report Type: Report from Study
  Country: US (occurrence: CH)
  Receive Date: 20161014
  Receipt Date: 20161123
  Transmission Date: 20170207
  Serious: Yes (Hospitalization)
  Sender: FDA-Public Use
  Company Number: US-PFIZER INC-2016470178

PATIENT
  Age: 79 Year
  Sex: Female
  Weight: 64.22 kg

DRUGS (9)
  1. ADVAIR HFA [Concomitant]
     Active Substance: FLUTICASONE PROPIONATE\SALMETEROL XINAFOATE
     Indication: CHRONIC OBSTRUCTIVE PULMONARY DISEASE
     Dosage: UNK
     Route: 055
  2. ATIVAN [Concomitant]
     Active Substance: LORAZEPAM
     Indication: ANXIETY
     Route: 048
  3. PD-325,901 [Suspect]
     Active Substance: INVESTIGATIONAL PRODUCT
     Indication: NON-SMALL CELL LUNG CANCER
     Dosage: 5 MG, 2X/DAY
     Route: 048
     Dates: start: 20160623
  4. SERTRALINE [Concomitant]
     Active Substance: SERTRALINE HYDROCHLORIDE
     Indication: DEPRESSION
     Dosage: UNK
     Route: 048
  5. LIPITOR [Concomitant]
     Active Substance: ATORVASTATIN CALCIUM
     Indication: PROPHYLAXIS
     Dosage: UNK
     Route: 048
  6. NEURONTIN [Concomitant]
     Active Substance: GABAPENTIN
     Dosage: UNK
     Route: 048
  7. PALBOCICLIB [Suspect]
     Active Substance: PALBOCICLIB
     Indication: NON-SMALL CELL LUNG CANCER
     Dosage: 100 MG, QD
     Route: 048
     Dates: start: 20160623
  8. PD-325,901 [Suspect]
     Active Substance: INVESTIGATIONAL PRODUCT
     Dosage: 5 MG, 1X/DAY
     Dates: start: 20161102
  9. GABAPENTIN. [Concomitant]
     Active Substance: GABAPENTIN
     Indication: RESPIRATORY DISORDER
     Dosage: UNK
     Route: 048

REACTIONS (2)
  - Pneumonitis [Recovered/Resolved]
  - Dyspnoea [Not Recovered/Not Resolved]

NARRATIVE: CASE EVENT DATE: 20161003
